FAERS Safety Report 10379831 (Version 1)
Quarter: 2014Q1

REPORT INFORMATION
  Report Type: Spontaneous
  Country: US (occurrence: None)
  Receive Date: 20140306
  Receipt Date: 20140306
  Transmission Date: 20141002
  Serious: Yes (Other)
  Sender: FDA-Public Use
  Company Number: 163-21880-13022081

PATIENT
  Age: 85 Year
  Sex: Male
  Weight: 80.65 kg

DRUGS (4)
  1. REVLIMID (LENALIDOMIDE) (5 MILLIGRAM, CAPSULES) [Suspect]
     Indication: PLASMA CELL MYELOMA
     Route: 048
     Dates: start: 20120810, end: 20130208
  2. LISINOPRIL (LISINOPRIL) [Concomitant]
  3. FLOMAX (TAMSULOSIN HYDROCHLORIDE) [Concomitant]
  4. OMEPRAZOLE (IMEPRAZOLE) [Concomitant]

REACTIONS (2)
  - Gastrointestinal haemorrhage [None]
  - Platelet count decreased [None]
